FAERS Safety Report 21209495 (Version 2)
Quarter: 2022Q3

REPORT INFORMATION
  Report Type: Spontaneous
  Country: US (occurrence: US)
  Receive Date: 20220813
  Receipt Date: 20220822
  Transmission Date: 20221027
  Serious: No
  Sender: FDA-Public Use
  Company Number: US-LUPIN PHARMACEUTICALS INC.-2022-10131

PATIENT
  Sex: Female
  Weight: 49.887 kg

DRUGS (1)
  1. HYDROCODONE BITARTRATE AND ACETAMINOPHEN [Suspect]
     Active Substance: ACETAMINOPHEN\HYDROCODONE BITARTRATE
     Indication: Back disorder
     Dosage: 3 DOSAGE FORM, TID, (1 TABLET EVERY 8 HOURS)
     Route: 065

REACTIONS (4)
  - Asthenia [Unknown]
  - Nervousness [Unknown]
  - Panic attack [Unknown]
  - Anxiety [Unknown]
